FAERS Safety Report 16022077 (Version 1)
Quarter: 2019Q1

REPORT INFORMATION
  Report Type: Report from Study
  Country: AU (occurrence: AU)
  Receive Date: 20190301
  Receipt Date: 20190301
  Transmission Date: 20190418
  Serious: Yes (Hospitalization)
  Sender: FDA-Public Use
  Company Number: AU-TOLMAR, INC.-2019AU001362

PATIENT

DRUGS (2)
  1. ELIGARD [Suspect]
     Active Substance: LEUPROLIDE ACETATE
     Indication: PROSTATE CANCER
     Dosage: 30 MG, FOUR MONTHLY
     Route: 058
  2. OSTELIN                            /00107901/ [Concomitant]
     Active Substance: ERGOCALCIFEROL
     Route: 065

REACTIONS (1)
  - Decreased appetite [Unknown]
